FAERS Safety Report 5927596-2 (Version None)
Quarter: 2008Q4

REPORT INFORMATION
  Report Type: 
  Country: None (occurrence: None)
  Receive Date: 20081021
  Receipt Date: 20081021
  Transmission Date: 20090506
  Serious: No
  Sender: FDA-Public Use
  Company Number: None

PATIENT
  Age: 57 Year
  Sex: Male

DRUGS (1)
  1. VARENICLINE [Suspect]
     Indication: SMOKING CESSATION THERAPY
     Dosage: MG BID PO
     Route: 048
     Dates: start: 20070803, end: 20071012

REACTIONS (2)
  - ABNORMAL DREAMS [None]
  - CONSTIPATION [None]
